FAERS Safety Report 17043868 (Version 1)
Quarter: 2019Q4

REPORT INFORMATION
  Report Type: Spontaneous
  Country: US (occurrence: US)
  Receive Date: 20191115
  Receipt Date: 20191115
  Transmission Date: 20200122
  Serious: Yes (Other)
  Sender: FDA-Public Use
  Company Number: None

PATIENT
  Age: 5 Month
  Sex: Female
  Weight: 89.55 kg

DRUGS (4)
  1. ZOLOFT [Suspect]
     Active Substance: SERTRALINE HYDROCHLORIDE
     Indication: DEPRESSION
     Route: 048
  2. MELATONIN [Suspect]
     Active Substance: MELATONIN
  3. GUMMY VITAMIN [Concomitant]
  4. ZOLOFT [Suspect]
     Active Substance: SERTRALINE HYDROCHLORIDE
     Indication: INITIAL INSOMNIA
     Route: 048

REACTIONS (5)
  - Abdominal discomfort [None]
  - Headache [None]
  - Drug interaction [None]
  - Tension [None]
  - Drug ineffective [None]

NARRATIVE: CASE EVENT DATE: 20191113
